FAERS Safety Report 23532402 (Version 1)
Quarter: 2024Q1

REPORT INFORMATION
  Report Type: Report from Study
  Country: CA (occurrence: CA)
  Receive Date: 20240216
  Receipt Date: 20240216
  Transmission Date: 20240410
  Serious: Yes (Other)
  Sender: FDA-Public Use
  Company Number: CA-ABBVIE-5639124

PATIENT
  Age: 45 Year
  Sex: Male

DRUGS (1)
  1. SKYRIZI [Suspect]
     Active Substance: RISANKIZUMAB-RZAA
     Indication: Crohn^s disease
     Dosage: 360 MG EVERY 8 WEEKS
     Route: 058
     Dates: start: 20230323

REACTIONS (2)
  - Intestinal resection [Recovering/Resolving]
  - Aphthous ulcer [Unknown]

NARRATIVE: CASE EVENT DATE: 20231014
